FAERS Safety Report 5104534-6 (Version None)
Quarter: 2006Q3

REPORT INFORMATION
  Report Type: 
  Country: None (occurrence: None)
  Receive Date: 20060908
  Receipt Date: 20060908
  Transmission Date: 20061208
  Serious: Yes (Hospitalization)
  Sender: FDA-Public Use
  Company Number: None

PATIENT
  Sex: Male
  Weight: 68.9467 kg

DRUGS (1)
  1. LASIX [Suspect]
     Indication: CARDIAC FAILURE CONGESTIVE
     Dosage: 20 MG BID IV
     Route: 042
     Dates: start: 20060312, end: 20060318

REACTIONS (3)
  - BLOOD BICARBONATE INCREASED [None]
  - BLOOD UREA INCREASED [None]
  - METABOLIC ACIDOSIS [None]
